FAERS Safety Report 25720267 (Version 2)
Quarter: 2025Q4

REPORT INFORMATION
  Report Type: Report from Study
  Country: GB (occurrence: GB)
  Receive Date: 20250825
  Receipt Date: 20251121
  Transmission Date: 20260118
  Serious: Yes (Other)
  Sender: CELLTRION
  Company Number: GB-ROCHE-10000354887

PATIENT

DRUGS (11)
  1. RITUXIMAB [Suspect]
     Active Substance: RITUXIMAB
     Indication: Non-Hodgkin^s lymphoma
     Dosage: 600 MG, EVERY 4 WEEKS, DOSE LAST STUDY DRUG ADMIN PRIOR AE IS 600 MG, 30-JUN-2025
     Route: 042
     Dates: start: 20241216
  2. LENALIDOMIDE [Suspect]
     Active Substance: LENALIDOMIDE
     Indication: Non-Hodgkin^s lymphoma
     Dosage: 20 MG, EVERY 1 DAY, START DATE OF MOST RECENT DOSE OF STUDY DRUG PRIOR TO AE: 10MG / START DATE OF M
     Route: 048
     Dates: start: 20241216
  3. ACETAMINOPHEN [Concomitant]
     Active Substance: ACETAMINOPHEN
     Indication: Infusion related reaction
     Dosage: 1 G AS NECESSARY, GIVEN FOR PROPHYLAXIS IS YES
     Route: 048
     Dates: start: 20241216, end: 20241216
  4. ACETAMINOPHEN [Concomitant]
     Active Substance: ACETAMINOPHEN
     Dosage: 1 G, EVERY 1 DAY, GIVEN FOR PROPHYLAXIS IS YES
     Route: 048
     Dates: start: 20250113, end: 20250113
  5. ACETAMINOPHEN [Concomitant]
     Active Substance: ACETAMINOPHEN
     Dosage: 1 G, EVERY 1 DAY, GIVEN FOR PROPHYLAXIS IS YES
     Route: 048
     Dates: start: 20241216, end: 20241216
  6. ATORVASTATIN [Concomitant]
     Active Substance: ATORVASTATIN
     Dosage: 20 MILLIGRAM, EVERY 1 DAY, GIVEN FOR PROPHYLAXIS IS YES
     Route: 048
     Dates: start: 20211110
  7. IVABRIDINE [Concomitant]
     Indication: Cardiomyopathy
     Dosage: 2.5 MILLIGRAM, EVERY 1 DAY
     Route: 048
     Dates: start: 20191212
  8. OMEPRAZOLE [Concomitant]
     Active Substance: OMEPRAZOLE
     Dosage: 20 MILLIGRAM, EVERY 1 DAY, GIVEN FOR PROPHYLAXIS IS YES
     Route: 048
     Dates: start: 20180228
  9. RAMIPRIL [Concomitant]
     Active Substance: RAMIPRIL
     Indication: Cardiomyopathy
     Dosage: 2.5 MILLIGRAM, EVERY 1 DAY
     Route: 048
     Dates: start: 20191115
  10. SPIRONOLACTONE [Concomitant]
     Active Substance: SPIRONOLACTONE
     Indication: Cardiomyopathy
     Dosage: 25 MILLIGRAM, EVERY 1 DAY
     Route: 048
     Dates: start: 20220913
  11. CHLORPHENIRAMINE MALEATE [Concomitant]
     Active Substance: CHLORPHENIRAMINE MALEATE
     Indication: Pruritus
     Dosage: AS NECESSARY
     Route: 048
     Dates: start: 202501

REACTIONS (1)
  - Creatinine renal clearance decreased [Not Recovered/Not Resolved]

NARRATIVE: CASE EVENT DATE: 20250728
